FAERS Safety Report 10794066 (Version 1)
Quarter: 2015Q1

REPORT INFORMATION
  Report Type: Report from Study
  Country: PR (occurrence: PR)
  Receive Date: 20150213
  Receipt Date: 20150213
  Transmission Date: 20150721
  Serious: Yes (Hospitalization)
  Sender: FDA-Public Use
  Company Number: PR-BIOGENIDEC-2014BI112995

PATIENT
  Age: 40 Year
  Sex: Female
  Weight: 42 kg

DRUGS (1)
  1. TYSABRI [Suspect]
     Active Substance: NATALIZUMAB
     Indication: CROHN^S DISEASE
     Route: 042
     Dates: start: 20121029, end: 20140814

REACTIONS (5)
  - Stoma site erythema [Unknown]
  - Drug ineffective [Not Recovered/Not Resolved]
  - Fistula [Unknown]
  - Enterocutaneous fistula [Not Recovered/Not Resolved]
  - Weight decreased [Unknown]

NARRATIVE: CASE EVENT DATE: 201408
